FAERS Safety Report 4598300-8 (Version None)
Quarter: 2005Q1

REPORT INFORMATION
  Report Type: 
  Country: None (occurrence: None)
  Receive Date: 20050204
  Receipt Date: 20040607
  Transmission Date: 20050727
  Serious: Yes (Hospitalization)
  Sender: FDA-Public Use
  Company Number: PHEH2004US06329

PATIENT
  Age: 56 Year
  Sex: Male

DRUGS (3)
  1. CLOZARIL [Suspect]
     Dosage: 300 MG/DAY ; 200 MG/DAY   :   ORAL
     Route: 048
     Dates: end: 20040401
  2. CLOZARIL [Suspect]
     Dosage: 300 MG/DAY ; 200 MG/DAY   :   ORAL
     Route: 048
     Dates: start: 20040401, end: 20040518
  3. DEPAKOTE [Concomitant]

REACTIONS (10)
  - ABNORMAL BEHAVIOUR [None]
  - BLOOD CREATINE PHOSPHOKINASE INCREASED [None]
  - DEHYDRATION [None]
  - HYPERTENSION [None]
  - HYPOAESTHESIA [None]
  - MEMORY IMPAIRMENT [None]
  - MENTAL IMPAIRMENT [None]
  - NEUROLEPTIC MALIGNANT SYNDROME [None]
  - SEPSIS [None]
  - URINARY TRACT INFECTION [None]
